FAERS Safety Report 9982121 (Version 1)
Quarter: 2014Q1

REPORT INFORMATION
  Report Type: Report from Study
  Country: US (occurrence: US)
  Receive Date: 20140307
  Receipt Date: 20140307
  Transmission Date: 20141002
  Serious: No
  Sender: FDA-Public Use
  Company Number: US-ABBVIE-13P-163-1177418-00

PATIENT
  Age: 52 Year
  Sex: Female

DRUGS (3)
  1. HUMIRA [Suspect]
     Indication: PSORIATIC ARTHROPATHY
     Dates: start: 20131112, end: 20131112
  2. HUMIRA [Suspect]
     Dates: start: 20131119, end: 20131119
  3. HUMIRA [Suspect]

REACTIONS (4)
  - Respiratory tract congestion [Recovered/Resolved]
  - Injection site pain [Not Recovered/Not Resolved]
  - Oropharyngeal pain [Recovered/Resolved]
  - Sinus congestion [Not Recovered/Not Resolved]
